FAERS Safety Report 9023811 (Version 3)
Quarter: 2013Q1

REPORT INFORMATION
  Report Type: Report from Study
  Country: US (occurrence: US)
  Receive Date: 20130121
  Receipt Date: 20130211
  Transmission Date: 20140127
  Serious: Yes (Hospitalization)
  Sender: FDA-Public Use
  Company Number: US-ABBOTT-13P-163-1036247-00

PATIENT
  Age: 51 None
  Sex: Male

DRUGS (5)
  1. HUMIRA [Suspect]
     Indication: CROHN^S DISEASE
     Dates: start: 20130105, end: 20130105
  2. HUMIRA [Suspect]
     Dosage: RX WRITTEN FOR 80MG ON 19 JAN 2013 THEN 40MG EVERY OTHER WEEK
     Dates: start: 20130120
  3. PENTASA [Concomitant]
     Indication: CROHN^S DISEASE
     Dosage: 3.5 GM DAILY
  4. PREDNISONE [Concomitant]
     Indication: CROHN^S DISEASE
     Dosage: 30 MG DAILY
  5. DICYCLOMINE [Concomitant]
     Indication: CROHN^S DISEASE
     Dosage: 20 MG 3 TO 4 TIMES DAILY

REACTIONS (10)
  - Intussusception [Unknown]
  - Fatigue [Unknown]
  - Haematochezia [Unknown]
  - Abdominal pain [Recovering/Resolving]
  - Fatigue [Unknown]
  - Asthenia [Unknown]
  - Sinusitis [Recovering/Resolving]
  - Abdominal discomfort [Not Recovered/Not Resolved]
  - Abdominal pain upper [Not Recovered/Not Resolved]
  - Pain [Not Recovered/Not Resolved]
